FAERS Safety Report 6359135-9 (Version None)
Quarter: 2009Q3

REPORT INFORMATION
  Report Type: 
  Country: None (occurrence: None)
  Receive Date: 20090917
  Receipt Date: 20090914
  Transmission Date: 20100115
  Serious: Yes (Hospitalization)
  Sender: FDA-Public Use
  Company Number: US-TEVA-209248USA

PATIENT
  Sex: Female

DRUGS (1)
  1. FENTANYL TRANSDERMAL SYSTEM ,25 MCG/H, 50 MCG/H, 75 MCG/H AND 100 MCG/ [Suspect]

REACTIONS (2)
  - HYPOTENSION [None]
  - PAIN [None]
